FAERS Safety Report 13395782 (Version 30)
Quarter: 2019Q2

REPORT INFORMATION
  Report Type: Report from Study
  Country: CA (occurrence: CA)
  Receive Date: 20170403
  Receipt Date: 20190613
  Transmission Date: 20190711
  Serious: Yes (Hospitalization, Other)
  Sender: FDA-Public Use
  Company Number: PHHY2010CA41841

PATIENT
  Age: 54 Year
  Sex: Female

DRUGS (18)
  1. SANDOSTATIN LAR DEPOT [Suspect]
     Active Substance: OCTREOTIDE ACETATE
     Dosage: 30 MG, EVERY 4 WEEKS
     Route: 030
     Dates: start: 20151217
  2. NOVO-TRAZODONE [Concomitant]
     Indication: PRODUCT USED FOR UNKNOWN INDICATION
     Dosage: 50 MG, 2 TABS QHS 50 MG, (2 TABS - NIGHT)
     Route: 065
  3. NORVASC [Concomitant]
     Active Substance: AMLODIPINE BESYLATE
     Indication: PRODUCT USED FOR UNKNOWN INDICATION
     Dosage: 5 MG, QD (ONCE DAILY)
     Route: 065
     Dates: start: 20190603
  4. SANDOSTATIN LAR DEPOT [Suspect]
     Active Substance: OCTREOTIDE ACETATE
     Dosage: 30 MG, EVERY 4 WEEKS
     Route: 030
  5. PANTOPRAZOLE [Suspect]
     Active Substance: PANTOPRAZOLE
     Indication: NAUSEA
     Dosage: 40 MG, QD
     Route: 065
     Dates: start: 201703
  6. OXYCONTIN [Concomitant]
     Active Substance: OXYCODONE HYDROCHLORIDE
     Indication: PRODUCT USED FOR UNKNOWN INDICATION
     Dosage: 20 MG, 8/DAY
     Route: 065
  7. SANDOSTATIN LAR DEPOT [Suspect]
     Active Substance: OCTREOTIDE ACETATE
     Indication: CARCINOID TUMOUR
     Dosage: 30 MG, (EVERY 3 WEEKS)
     Route: 030
     Dates: start: 20071004, end: 20071101
  8. OXYCOCET [Concomitant]
     Active Substance: ACETAMINOPHEN\OXYCODONE HYDROCHLORIDE
     Indication: PRODUCT USED FOR UNKNOWN INDICATION
     Dosage: 325 MG, 12/DAY
     Route: 065
  9. FENTANYL. [Concomitant]
     Active Substance: FENTANYL
     Indication: PRODUCT USED FOR UNKNOWN INDICATION
     Dosage: 25 UG, QOD
     Route: 065
  10. AMOXICILLIN. [Concomitant]
     Active Substance: AMOXICILLIN
     Indication: PRODUCT USED FOR UNKNOWN INDICATION
     Dosage: 500 MG, TID
     Route: 065
     Dates: start: 201703
  11. LYRICA [Concomitant]
     Active Substance: PREGABALIN
     Indication: PRODUCT USED FOR UNKNOWN INDICATION
     Dosage: 150 MG IN MOTRNING AND 225 MG, AT NIGHT ALL ALONG
     Route: 065
  12. SANDOSTATIN [Suspect]
     Active Substance: OCTREOTIDE ACETATE
     Indication: CARCINOID TUMOUR
     Dosage: UNK
     Route: 058
  13. VERAPAMIL [Suspect]
     Active Substance: VERAPAMIL HYDROCHLORIDE
     Dosage: 240 MG QD
     Route: 065
  14. SANDOSTATIN LAR DEPOT [Suspect]
     Active Substance: OCTREOTIDE ACETATE
     Dosage: 30 MG, EVERY 3 WEEKS
     Route: 030
  15. VERAPAMIL [Suspect]
     Active Substance: VERAPAMIL HYDROCHLORIDE
     Indication: PRODUCT USED FOR UNKNOWN INDICATION
     Dosage: 120 MG, QD
     Route: 065
  16. CONJUGATED ESTROGENS [Concomitant]
     Active Substance: ESTROGENS, CONJUGATED
     Indication: PRODUCT USED FOR UNKNOWN INDICATION
     Dosage: 1.25 MG, QD
     Route: 065
  17. NOVO-CYCLOPRINE [Concomitant]
     Indication: PRODUCT USED FOR UNKNOWN INDICATION
     Dosage: 10 MG, EVERY PM
     Route: 065
  18. CYCLOBENZAPRINE. [Concomitant]
     Active Substance: CYCLOBENZAPRINE
     Indication: PRODUCT USED FOR UNKNOWN INDICATION
     Route: 065

REACTIONS (46)
  - Pain [Unknown]
  - Bile duct stone [Unknown]
  - Gallbladder oedema [Unknown]
  - Malaise [Unknown]
  - Body temperature decreased [Unknown]
  - Contusion [Recovered/Resolved]
  - Influenza like illness [Unknown]
  - Heart rate increased [Unknown]
  - Pyrexia [Unknown]
  - Hepatic neoplasm [Unknown]
  - Gastrointestinal neoplasm [Unknown]
  - Thyroid hormones decreased [Unknown]
  - Nausea [Unknown]
  - Asthenia [Unknown]
  - Hyperhidrosis [Unknown]
  - Abdominal pain upper [Unknown]
  - Migraine [Unknown]
  - Breast mass [Unknown]
  - Faeces pale [Unknown]
  - Palpitations [Unknown]
  - Muscle strain [Unknown]
  - Back pain [Unknown]
  - Erythema [Unknown]
  - Hot flush [Unknown]
  - Headache [Unknown]
  - Fatigue [Unknown]
  - Abdominal pain [Unknown]
  - Faeces discoloured [Unknown]
  - Injection site pain [Unknown]
  - Sinusitis [Unknown]
  - Vaginal ulceration [Recovered/Resolved]
  - Abdominal discomfort [Unknown]
  - Nasopharyngitis [Unknown]
  - Drug ineffective [Unknown]
  - Urine odour abnormal [Recovered/Resolved]
  - Diarrhoea [Unknown]
  - Abdominal pain lower [Not Recovered/Not Resolved]
  - Injection site bruising [Unknown]
  - Inappropriate schedule of product administration [Unknown]
  - Yellow skin [Unknown]
  - Blood pressure increased [Unknown]
  - Flushing [Unknown]
  - Hepatic enzyme increased [Recovering/Resolving]
  - Stress [Unknown]
  - Musculoskeletal chest pain [Unknown]
  - Eye swelling [Recovered/Resolved]

NARRATIVE: CASE EVENT DATE: 20120906
